FAERS Safety Report 8902650 (Version 1)
Quarter: 2012Q4

REPORT INFORMATION
  Report Type: 
  Country: US (occurrence: US)
  Receive Date: 20121112
  Receipt Date: 20121112
  Transmission Date: 20130627
  Serious: Yes (Other)
  Sender: FDA-Public Use
  Company Number: US-ROCHE-1150854

PATIENT

DRUGS (2)
  1. CAPECITABINE [Suspect]
     Indication: NON-SMALL CELL LUNG CANCER
     Route: 048
  2. DOCETAXEL [Suspect]
     Indication: NON-SMALL CELL LUNG CANCER
     Route: 042

REACTIONS (18)
  - Myocardial infarction [Unknown]
  - Dehydration [Unknown]
  - Ascites [Unknown]
  - Mucosal inflammation [Unknown]
  - Nausea [Unknown]
  - Vomiting [Unknown]
  - Fatigue [Unknown]
  - Diarrhoea [Unknown]
  - Decreased appetite [Unknown]
  - Dyspnoea [Unknown]
  - Haemoptysis [Unknown]
  - Hyperglycaemia [Unknown]
  - Hypoglycaemia [Unknown]
  - Hypophosphataemia [Unknown]
  - Palmar-plantar erythrodysaesthesia syndrome [Unknown]
  - Leukopenia [Unknown]
  - Anaemia [Unknown]
  - Neutropenia [Unknown]
